FAERS Safety Report 5964987-8 (Version None)
Quarter: 2008Q4

REPORT INFORMATION
  Report Type: 
  Country: None (occurrence: None)
  Receive Date: 20081124
  Receipt Date: 20081124
  Transmission Date: 20090506
  Serious: Yes (Other)
  Sender: FDA-Public Use
  Company Number: None

PATIENT
  Age: 76 Year
  Sex: Female
  Weight: 68.0396 kg

DRUGS (1)
  1. RECLAST [Suspect]
     Indication: OSTEOPOROSIS
     Dosage: IV
     Route: 042
     Dates: start: 20081119, end: 20081119

REACTIONS (8)
  - AMNESIA [None]
  - FALL [None]
  - FEELING ABNORMAL [None]
  - FEELING COLD [None]
  - GAIT DISTURBANCE [None]
  - LOSS OF CONTROL OF LEGS [None]
  - MUSCLE DISORDER [None]
  - VOMITING [None]
